FAERS Safety Report 7858999-7 (Version None)
Quarter: 2011Q3

REPORT INFORMATION
  Report Type: 
  Country: None (occurrence: None)
  Receive Date: 20110923
  Receipt Date: 20101122
  Transmission Date: 20111222
  Serious: Yes (Other)
  Sender: FDA-Public Use
  Company Number: 10-019

PATIENT
  Age: 6 Year
  Sex: Female

DRUGS (7)
  1. ALBUTEROL [Concomitant]
  2. ZYRTEC [Concomitant]
  3. SINGULAIR [Concomitant]
  4. VENTOLIN [Concomitant]
  5. BENADRYL [Concomitant]
  6. NEGATIVE CONTROL SCRATCH [Suspect]
     Indication: SKIN TEST
     Dosage: 5ML, ONCE, SKIN PRICK
     Dates: start: 20101122
  7. FLOVENT [Concomitant]

REACTIONS (1)
  - SKIN TEST POSITIVE [None]
